FAERS Safety Report 4905299-0 (Version None)
Quarter: 2006Q1

REPORT INFORMATION
  Report Type: 
  Country: None (occurrence: None)
  Receive Date: 20060208
  Receipt Date: 20060203
  Transmission Date: 20060701
  Serious: Yes (Death)
  Sender: FDA-Public Use
  Company Number: PHBS2006RU01898

PATIENT
  Sex: Female
  Weight: 70 kg

DRUGS (1)
  1. SANDIMMUNE [Suspect]
     Indication: NEPHROTIC SYNDROME
     Route: 048

REACTIONS (3)
  - ANGINA PECTORIS [None]
  - DEATH [None]
  - LEUKOPENIA [None]
